FAERS Safety Report 23544420 (Version 1)
Quarter: 2024Q1

REPORT INFORMATION
  Report Type: Spontaneous
  Country: US (occurrence: None)
  Receive Date: 20240216
  Receipt Date: 20240216
  Transmission Date: 20240410
  Serious: No
  Sender: FDA-Public Use
  Company Number: None

PATIENT

DRUGS (1)
  1. DESMOPRESSIN [Suspect]
     Active Substance: DESMOPRESSIN

REACTIONS (14)
  - Seizure [None]
  - Fall [None]
  - Craniocerebral injury [None]
  - Multiple injuries [None]
  - Hypertension [None]
  - Haemorrhage [None]
  - Coma [None]
  - Amnesia [None]
  - Amnesia [None]
  - Hyponatraemia [None]
  - Gait inability [None]
  - Mental status changes [None]
  - Pain [None]
  - Anxiety [None]

NARRATIVE: CASE EVENT DATE: 20070616
